FAERS Safety Report 8221085-0 (Version None)
Quarter: 2012Q1

REPORT INFORMATION
  Report Type: 
  Country: None (occurrence: None)
  Receive Date: 20120320
  Receipt Date: 20120315
  Transmission Date: 20120608
  Serious: Yes (Hospitalization)
  Sender: FDA-Public Use
  Company Number: US-B.I. PHARMACEUTICALS,INC./RIDGEFIELD-2012-BP-04979BP

PATIENT
  Sex: Female

DRUGS (4)
  1. XANAX [Concomitant]
     Indication: PANIC ATTACK
  2. INSULIN [Concomitant]
     Indication: TYPE 1 DIABETES MELLITUS
  3. SPIRIVA [Suspect]
     Indication: CHRONIC OBSTRUCTIVE PULMONARY DISEASE
     Dosage: 18 MCG
     Route: 055
     Dates: start: 20110301
  4. PERCOCET [Concomitant]
     Indication: PAIN

REACTIONS (4)
  - ASTHENIA [None]
  - DYSPNOEA [None]
  - DRY MOUTH [None]
  - CHRONIC OBSTRUCTIVE PULMONARY DISEASE [None]
